FAERS Safety Report 15661935 (Version 1)
Quarter: 2018Q4

REPORT INFORMATION
  Report Type: Spontaneous
  Country: FR (occurrence: FR)
  Receive Date: 20181127
  Receipt Date: 20181127
  Transmission Date: 20190205
  Serious: Yes (Death, Other)
  Sender: FDA-Public Use
  Company Number: FR-PFIZER INC-2018482068

PATIENT
  Age: 51 Year
  Sex: Female

DRUGS (1)
  1. SUNITINIB MALATE. [Suspect]
     Active Substance: SUNITINIB MALATE
     Dosage: 50 MG, CYCLIC (4 WEEKS ON / 2 WEEKS OFF)
     Dates: start: 20150901

REACTIONS (5)
  - Back pain [Unknown]
  - Neoplasm progression [Unknown]
  - Monoplegia [Unknown]
  - Atelectasis [Unknown]
  - Pleural effusion [Unknown]

NARRATIVE: CASE EVENT DATE: 201605
